FAERS Safety Report 6617071-4 (Version None)
Quarter: 2010Q1

REPORT INFORMATION
  Report Type: 
  Country: None (occurrence: None)
  Receive Date: 20100307
  Receipt Date: 20100222
  Transmission Date: 20100710
  Serious: Yes (Other)
  Sender: FDA-Public Use
  Company Number: US-ELI_LILLY_AND_COMPANY-US201002006970

PATIENT
  Age: 70 Year
  Sex: Female

DRUGS (5)
  1. CYMBALTA [Suspect]
     Indication: MYALGIA
     Dosage: 60 MG, DAILY (1/D)
     Route: 065
     Dates: start: 20080101
  2. CYMBALTA [Suspect]
     Dosage: 120 MG, DAILY (1/D)
     Route: 065
  3. CYMBALTA [Suspect]
     Dosage: 60 MG, 2/D
     Route: 065
  4. CYMBALTA [Suspect]
     Dosage: 120 MG, DAILY (1/D)
     Route: 065
  5. CYMBALTA [Suspect]
     Dosage: 60 MG, DAILY (1/D)
     Route: 065

REACTIONS (7)
  - CATARACT OPERATION [None]
  - DIZZINESS [None]
  - GLAUCOMA [None]
  - OFF LABEL USE [None]
  - PAIN [None]
  - VISION BLURRED [None]
  - VISUAL ACUITY REDUCED [None]
